FAERS Safety Report 6301869-6 (Version None)
Quarter: 2009Q3

REPORT INFORMATION
  Report Type: 
  Country: None (occurrence: None)
  Receive Date: 20090807
  Receipt Date: 20090727
  Transmission Date: 20100115
  Serious: Yes (Hospitalization)
  Sender: FDA-Public Use
  Company Number: US-ROCHE-641132

PATIENT
  Age: 89 Year
  Sex: Female

DRUGS (6)
  1. BONIVA [Suspect]
     Indication: OSTEOPOROSIS
     Route: 048
     Dates: start: 20090401, end: 20090701
  2. ZOLOFT [Concomitant]
     Indication: DEPRESSION
     Dosage: DOSE REPORTED AS 25 AND FREQUENCY REPORTED AS 2D
     Route: 048
     Dates: start: 20040101
  3. ATENOLOL [Concomitant]
     Indication: HYPERTENSION
     Dosage: DOSE REPORTED AS 100 AND FREQUENCY REPORTED AS 2D
     Route: 048
     Dates: start: 20020101
  4. ALTACE [Concomitant]
     Indication: HYPERTENSION
     Dosage: DOSE REPORTED AS 100 AND FREQUENCY REPORTED AS ^2D^
     Route: 048
     Dates: start: 20020101
  5. NORVASC [Concomitant]
     Indication: HYPERTENSION
     Dosage: DOSE REPORTED AS 5 AND FREQUENCY REPORTED AS ^2D^
     Route: 048
     Dates: start: 20020101
  6. ZOCOR [Concomitant]
     Dosage: DOSE REPORTED AS 20 AND FREQUENCY REPORTED AS ^2D^
     Route: 048
     Dates: start: 20050101

REACTIONS (2)
  - CATARACT OPERATION [None]
  - HYPONATRAEMIA [None]
